FAERS Safety Report 17989688 (Version 1)
Quarter: 2020Q3

REPORT INFORMATION
  Report Type: Spontaneous
  Country: US (occurrence: US)
  Receive Date: 20200707
  Receipt Date: 20200707
  Transmission Date: 20201103
  Serious: Yes (Other)
  Sender: FDA-Public Use
  Company Number: None

PATIENT
  Sex: Female

DRUGS (2)
  1. LORCASERIN 10MG [Suspect]
     Active Substance: LORCASERIN
  2. PHENTERMINE 37.5 MG [Suspect]
     Active Substance: PHENTERMINE

REACTIONS (1)
  - Therapy non-responder [None]
